FAERS Safety Report 13471180 (Version 4)
Quarter: 2017Q2

REPORT INFORMATION
  Report Type: Report from Study
  Country: BE (occurrence: BE)
  Receive Date: 20170424
  Receipt Date: 20170512
  Transmission Date: 20170830
  Serious: Yes (Life-Threatening, Hospitalization)
  Sender: FDA-Public Use
  Company Number: BE-ROCHE-1922271

PATIENT
  Age: 66 Year
  Sex: Male
  Weight: 86 kg

DRUGS (3)
  1. ATEZOLIZUMAB [Suspect]
     Active Substance: ATEZOLIZUMAB
     Indication: COLORECTAL ADENOCARCINOMA
     Dosage: DATE OF MOST RECENT DOSE PRIOR TO AE ONSET: 16/MAR/2017 AT 12:42?DAY 1 AND DAY 15 OF EACH 28 DAY CYC
     Route: 042
     Dates: start: 20161222
  2. COBIMETINIB [Suspect]
     Active Substance: COBIMETINIB
     Indication: COLORECTAL ADENOCARCINOMA
     Dosage: MOST RECENT DOSE PRIOR TO AE ONSET: 06/APR/2017, 80 MG?DAYS 1 TO 21 IN A 28 DAY CYCLE
     Route: 048
     Dates: start: 20161222
  3. IMODIUM [Concomitant]
     Active Substance: LOPERAMIDE HYDROCHLORIDE
     Indication: DIARRHOEA
     Route: 048
     Dates: start: 20170103

REACTIONS (1)
  - Pleural infection [Recovering/Resolving]

NARRATIVE: CASE EVENT DATE: 20170416
